FAERS Safety Report 5817789-7 (Version None)
Quarter: 2008Q3

REPORT INFORMATION
  Report Type: 
  Country: None (occurrence: None)
  Receive Date: 20080716
  Receipt Date: 20080609
  Transmission Date: 20090109
  Serious: Yes (Other)
  Sender: FDA-Public Use
  Company Number: 2008-00604FE

PATIENT
  Age: 36 Year
  Sex: Female

DRUGS (9)
  1. MENOPUR [Suspect]
     Indication: IN VITRO FERTILISATION
     Dates: start: 20070401, end: 20070501
  2. HUMAN CHORONIC GONADOTROPIN (GONADOTROPIN CHORIONIC) [Suspect]
     Indication: INFERTILITY
     Dates: start: 20070501, end: 20080404
  3. PROGESTERONE [Suspect]
     Dosage: 2 ML
     Dates: start: 20070101, end: 20070701
  4. GONAL-F RFF PEN (GONAL-F) (FOLLITROPIN ALFA) [Suspect]
     Indication: ASSISTED FERTILISATION
     Dates: start: 20070401, end: 20070501
  5. GONAL-F RFF PEN (GONAL-F) (FOLLITROPIN ALFA) [Suspect]
     Indication: ASSISTED FERTILISATION
     Dates: start: 20080101
  6. LUPRON [Suspect]
     Indication: IN VITRO FERTILISATION
     Dates: start: 20070401, end: 20070501
  7. ESTRACE [Suspect]
     Dosage: 1 UNK PO
     Route: 048
     Dates: start: 20070101, end: 20070701
  8. ASPIRIN [Concomitant]
  9. ENOXAPARIN SODIUM [Concomitant]

REACTIONS (5)
  - ABORTION SPONTANEOUS [None]
  - BREAST TENDERNESS [None]
  - CYST [None]
  - DRUG EXPOSURE DURING PREGNANCY [None]
  - PREGNANCY [None]
